FAERS Safety Report 7534473-2 (Version None)
Quarter: 2011Q2

REPORT INFORMATION
  Report Type: 
  Country: None (occurrence: None)
  Receive Date: 20110609
  Receipt Date: 20110601
  Transmission Date: 20111010
  Serious: Yes (Hospitalization, Other)
  Sender: FDA-Public Use
  Company Number: PHHO2011US09512

PATIENT
  Sex: Male
  Weight: 156 kg

DRUGS (2)
  1. GLEEVEC [Suspect]
     Indication: MIXED OLIGO-ASTROCYTOMA
     Dosage: 600 MG, DAILY, EVERY 28 DAYS
     Route: 048
     Dates: start: 20110113, end: 20110420
  2. DEXAMETHASONE [Suspect]

REACTIONS (3)
  - NEOPLASM MALIGNANT [None]
  - PARTIAL SEIZURES [None]
  - HYPERGLYCAEMIA [None]
